FAERS Safety Report 6288824-X (Version None)
Quarter: 2009Q3

REPORT INFORMATION
  Report Type: 
  Country: None (occurrence: None)
  Receive Date: 20090727
  Receipt Date: 20090721
  Transmission Date: 20100115
  Serious: Yes (Hospitalization, Other)
  Sender: FDA-Public Use
  Company Number: CHNY2009GB02590

PATIENT
  Age: 52 Year
  Sex: Female

DRUGS (10)
  1. HYOSCINE HBR HYT [Suspect]
     Indication: SALIVARY HYPERSECRETION
     Dosage: 1 DF, Q72H, TRANSDERMAL; USING PART PATCHES, TRANSDERMAL
     Route: 062
     Dates: start: 20081024, end: 20090603
  2. OLANZAPINE [Concomitant]
  3. SERTRALINE [Concomitant]
  4. EPISENTA [Concomitant]
  5. CLOBAZAM (CLOBAZAM) [Concomitant]
  6. ASPIRIN [Concomitant]
  7. CELECOXIB [Concomitant]
  8. CO-AMILOFRUSE (AMILORIDE HYDROCHLORIDE, FUROSEMIDE) [Concomitant]
  9. ESOMEPRAZOLE MAGNESIUM [Concomitant]
  10. VALPROATE SODIUM [Concomitant]

REACTIONS (11)
  - ABNORMAL BEHAVIOUR [None]
  - COUGH [None]
  - DRUG WITHDRAWAL SYNDROME [None]
  - DRY MOUTH [None]
  - MICTURITION DISORDER [None]
  - PNEUMONIA ASPIRATION [None]
  - RESTLESSNESS [None]
  - RETCHING [None]
  - THERAPEUTIC RESPONSE UNEXPECTED [None]
  - VOMITING [None]
  - WRONG TECHNIQUE IN DRUG USAGE PROCESS [None]
